FAERS Safety Report 9663622 (Version 1)
Quarter: 2013Q4

REPORT INFORMATION
  Report Type: Spontaneous
  Country: US (occurrence: US)
  Receive Date: 20131101
  Receipt Date: 20131101
  Transmission Date: 20140711
  Serious: No
  Sender: FDA-Public Use
  Company Number: US-PFIZER INC-2013308787

PATIENT
  Sex: Male

DRUGS (2)
  1. NEOSPORIN [Suspect]
     Dosage: UNK
     Route: 047
  2. NEOMYCIN SULFATE [Suspect]
     Dosage: UNK
     Route: 047

REACTIONS (2)
  - Drug hypersensitivity [Unknown]
  - Eye pruritus [Unknown]
